FAERS Safety Report 15209109 (Version 2)
Quarter: 2020Q2

REPORT INFORMATION
  Report Type: Spontaneous
  Country: US (occurrence: US)
  Receive Date: 20180727
  Receipt Date: 20200605
  Transmission Date: 20200713
  Serious: Yes (Hospitalization, Other)
  Sender: FDA-Public Use
  Company Number: US-009507513-1807USA012083

PATIENT
  Sex: Female
  Weight: 86.17 kg

DRUGS (3)
  1. JANUVIA [Suspect]
     Active Substance: SITAGLIPTIN PHOSPHATE
     Dosage: 100 MG, ONCE DAILY
     Route: 048
     Dates: start: 20090323, end: 201211
  2. LEVOTHYROXINE SODIUM. [Concomitant]
     Active Substance: LEVOTHYROXINE SODIUM
     Indication: HYPOTHYROIDISM
     Dosage: UNK
     Dates: start: 2005, end: 201808
  3. PRINIVIL [Concomitant]
     Active Substance: LISINOPRIL
     Indication: HYPERTENSION
     Dosage: UNK
     Route: 048
     Dates: start: 2005, end: 201808

REACTIONS (10)
  - Splenectomy [Unknown]
  - Hypercholesterolaemia [Unknown]
  - Vertigo [Unknown]
  - Arthralgia [Recovering/Resolving]
  - Biliary dilatation [Recovered/Resolved]
  - Chills [Unknown]
  - Pruritus [Unknown]
  - Myalgia [Recovering/Resolving]
  - Pancreatic carcinoma [Unknown]
  - Dizziness [Unknown]

NARRATIVE: CASE EVENT DATE: 20090825
